FAERS Safety Report 19039854 (Version 1)
Quarter: 2021Q1

REPORT INFORMATION
  Report Type: Report from Study
  Country: DE (occurrence: DE)
  Receive Date: 20210322
  Receipt Date: 20210322
  Transmission Date: 20210420
  Serious: Yes (Hospitalization)
  Sender: FDA-Public Use
  Company Number: DE-SHIRE-DE201713545

PATIENT
  Age: 23 Year
  Sex: Male
  Weight: 50.79 kg

DRUGS (8)
  1. TEDUGLUTIDE [Suspect]
     Active Substance: TEDUGLUTIDE
     Indication: SHORT-BOWEL SYNDROME
     Dosage: 2 MILLIGRAM, QD
     Route: 058
     Dates: start: 20150221, end: 201607
  2. TEDUGLUTIDE [Suspect]
     Active Substance: TEDUGLUTIDE
     Indication: SHORT-BOWEL SYNDROME
     Dosage: 2 MILLIGRAM, QD
     Route: 058
     Dates: start: 20150221, end: 201607
  3. METAMIZOL                          /06276702/ [Concomitant]
     Active Substance: METAMIZOLE
     Indication: PAIN
     Dosage: 20 GTT, AS REQ^D
     Route: 048
     Dates: start: 20160902
  4. CALCIVIT [Concomitant]
     Indication: MINERAL SUPPLEMENTATION
     Dosage: 1 DF, 1X/DAY:QD
     Route: 048
     Dates: start: 20160819
  5. TEDUGLUTIDE [Suspect]
     Active Substance: TEDUGLUTIDE
     Indication: SHORT-BOWEL SYNDROME
     Dosage: 2 MILLIGRAM, QD
     Route: 058
     Dates: start: 20150221, end: 201607
  6. TEDUGLUTIDE [Suspect]
     Active Substance: TEDUGLUTIDE
     Indication: SHORT-BOWEL SYNDROME
     Dosage: 2 MILLIGRAM, QD
     Route: 058
     Dates: start: 20150221, end: 201607
  7. ENTYVIO [Concomitant]
     Active Substance: VEDOLIZUMAB
     Indication: CROHN^S DISEASE
     Dosage: UNK, UNKNOWN
     Route: 065
     Dates: start: 20161018
  8. CLEXANE [Concomitant]
     Active Substance: ENOXAPARIN SODIUM
     Indication: THROMBOSIS PROPHYLAXIS
     Dosage: 40 MG, 1X/DAY:QD
     Route: 058
     Dates: start: 20161101

REACTIONS (1)
  - Fistula [Not Recovered/Not Resolved]

NARRATIVE: CASE EVENT DATE: 20160426
